FAERS Safety Report 8382851-4 (Version None)
Quarter: 2012Q2

REPORT INFORMATION
  Report Type: 
  Country: None (occurrence: None)
  Receive Date: 20120524
  Receipt Date: 20120521
  Transmission Date: 20120825
  Serious: Yes (Other)
  Sender: FDA-Public Use
  Company Number: DE-JNJFOC-20120410010

PATIENT
  Sex: Male

DRUGS (9)
  1. ZYPREXA [Concomitant]
     Route: 048
     Dates: start: 20120312, end: 20120412
  2. ZYPREXA [Concomitant]
     Route: 048
     Dates: start: 20120416, end: 20120423
  3. ABILIFY [Concomitant]
     Indication: SCHIZOPHRENIA, PARANOID TYPE
     Route: 048
     Dates: start: 20120312, end: 20120412
  4. PALIPERIDONE [Suspect]
     Indication: SCHIZOPHRENIA, PARANOID TYPE
     Route: 030
     Dates: start: 20120321
  5. PALIPERIDONE [Suspect]
     Route: 030
  6. PALIPERIDONE [Suspect]
     Route: 030
     Dates: start: 20120328
  7. ZYPREXA [Concomitant]
     Indication: SCHIZOPHRENIA, PARANOID TYPE
     Route: 048
     Dates: start: 20120430
  8. ZYPREXA [Concomitant]
     Route: 048
     Dates: start: 20120424, end: 20120429
  9. UNKNOWN MEDICATION [Concomitant]
     Route: 065

REACTIONS (2)
  - PRIAPISM [None]
  - PELVIC VENOUS THROMBOSIS [None]
